FAERS Safety Report 26209924 (Version 1)
Quarter: 2025Q4

REPORT INFORMATION
  Report Type: Spontaneous
  Country: AU (occurrence: AU)
  Receive Date: 20251229
  Receipt Date: 20251229
  Transmission Date: 20260117
  Serious: Yes (Other)
  Sender: OTSUKA
  Company Number: AU-LUNDBECK-DKLU4023201

PATIENT
  Sex: Female

DRUGS (2)
  1. ARIPIPRAZOLE [Suspect]
     Active Substance: ARIPIPRAZOLE
     Indication: Product used for unknown indication
     Dosage: 400 MILLIGRAM
     Route: 065
  2. ARIPIPRAZOLE [Suspect]
     Active Substance: ARIPIPRAZOLE
     Dosage: 300 MILLIGRAM
     Route: 065

REACTIONS (7)
  - Carditis [Unknown]
  - Pertussis [Unknown]
  - Rhinorrhoea [Unknown]
  - COVID-19 [Unknown]
  - Viral infection [Unknown]
  - Electrocardiogram abnormal [Unknown]
  - Blood cholesterol decreased [Unknown]
